FAERS Safety Report 4447401-3 (Version None)
Quarter: 2004Q3

REPORT INFORMATION
  Report Type: 
  Country: None (occurrence: None)
  Receive Date: 20040823
  Receipt Date: 20040719
  Transmission Date: 20050211
  Serious: No
  Sender: FDA-Public Use
  Company Number: PHEH2004US07700

PATIENT
  Age: 51 Year
  Sex: Female

DRUGS (8)
  1. ZELNORM [Suspect]
     Indication: IRRITABLE BOWEL SYNDROME
     Dosage: 6 MG BID ORAL
     Route: 048
     Dates: start: 20040715
  2. LEXAPRO [Suspect]
     Indication: DEPRESSION
  3. POTASSIUM CHLORIDE [Concomitant]
  4. HYDROCHLOROTHIAZIDE [Concomitant]
  5. KLONOPIN [Concomitant]
  6. ESTRADERM [Concomitant]
  7. CELEBREX [Concomitant]
  8. NEXIUM [Concomitant]

REACTIONS (5)
  - CONDITION AGGRAVATED [None]
  - HYPERHIDROSIS [None]
  - RASH ERYTHEMATOUS [None]
  - RASH MACULAR [None]
  - RASH PRURITIC [None]
